FAERS Safety Report 9887524 (Version 1)
Quarter: 2013Q4

REPORT INFORMATION
  Report Type: Spontaneous
  Country: US (occurrence: None)
  Receive Date: 20131223
  Receipt Date: 20131223
  Transmission Date: 20140711
  Serious: No
  Sender: FDA-Public Use
  Company Number: 217764LEO

PATIENT
  Age: 54 Year
  Sex: Female

DRUGS (1)
  1. PICATO (0.015 %, GEL) [Suspect]
     Indication: ACTINIC KERATOSIS
     Dates: start: 20120515, end: 20120517

REACTIONS (7)
  - Drug administered at inappropriate site [None]
  - Application site oedema [None]
  - Application site pruritus [None]
  - Application site pain [None]
  - Application site exfoliation [None]
  - Application site vesicles [None]
  - Fatigue [None]
